FAERS Safety Report 10269148 (Version 2)
Quarter: 2014Q3

REPORT INFORMATION
  Report Type: Report from Study
  Country: US (occurrence: US)
  Receive Date: 20140630
  Receipt Date: 20140826
  Transmission Date: 20150326
  Serious: Yes (Death, Other)
  Sender: FDA-Public Use
  Company Number: US-ABBVIE-14P-163-1251761-00

PATIENT
  Age: 39 Year
  Sex: Male
  Weight: 72.64 kg

DRUGS (4)
  1. VITAMINS NOS [Concomitant]
     Active Substance: VITAMINS
     Indication: PRODUCT USED FOR UNKNOWN INDICATION
  2. HUMIRA [Suspect]
     Active Substance: ADALIMUMAB
     Indication: CROHN^S DISEASE
     Route: 058
  3. IMURAN [Concomitant]
     Active Substance: AZATHIOPRINE
     Indication: CROHN^S DISEASE
  4. HUMIRA [Suspect]
     Active Substance: ADALIMUMAB
     Indication: CROHN^S DISEASE
     Dates: end: 201406

REACTIONS (18)
  - Diarrhoea [Not Recovered/Not Resolved]
  - Arteriosclerosis [Fatal]
  - Pain in extremity [Unknown]
  - Chest pain [Unknown]
  - Fall [Not Recovered/Not Resolved]
  - Cardiac arrest [Fatal]
  - Feeling cold [Not Recovered/Not Resolved]
  - Proctalgia [Not Recovered/Not Resolved]
  - Rectal haemorrhage [Unknown]
  - Fatigue [Unknown]
  - Aortic rupture [Fatal]
  - Pain [Not Recovered/Not Resolved]
  - Rectal fissure [Not Recovered/Not Resolved]
  - Haematocrit decreased [Not Recovered/Not Resolved]
  - Cardiac tamponade [Fatal]
  - Asthenia [Unknown]
  - Arthralgia [Not Recovered/Not Resolved]
  - Lactose intolerance [Not Recovered/Not Resolved]

NARRATIVE: CASE EVENT DATE: 2012
